FAERS Safety Report 4954505-5 (Version None)
Quarter: 2006Q1

REPORT INFORMATION
  Report Type: 
  Country: None (occurrence: None)
  Receive Date: 20060322
  Receipt Date: 20060307
  Transmission Date: 20060701
  Serious: Yes (Disabling)
  Sender: FDA-Public Use
  Company Number: 2005S1000443

PATIENT
  Age: 10 Year
  Sex: Female
  Weight: 27.9869 kg

DRUGS (3)
  1. SORIATANE [Suspect]
     Indication: PSORIASIS
     Dosage: SEE IMAGE
     Route: 048
     Dates: start: 20050518, end: 20050701
  2. SORIATANE [Suspect]
     Indication: PSORIASIS
     Dosage: SEE IMAGE
     Route: 048
     Dates: start: 20050701, end: 20050801
  3. SORIATANE [Suspect]
     Indication: PSORIASIS
     Dosage: SEE IMAGE
     Route: 048
     Dates: start: 20050801, end: 20051116

REACTIONS (3)
  - ARTHRALGIA [None]
  - DRUG INEFFECTIVE [None]
  - OSTEOCHONDROSIS [None]
